FAERS Safety Report 8796810 (Version 1)
Quarter: 2012Q4

REPORT INFORMATION
  Report Type: 
  Country: US (occurrence: US)
  Receive Date: 20120919
  Receipt Date: 20120919
  Transmission Date: 20130627
  Serious: Yes (Hospitalization, Other)
  Sender: FDA-Public Use
  Company Number: US-009507513-1109USA01920

PATIENT

DRUGS (2)
  1. FOSAMAX [Suspect]
     Indication: OSTEOPOROSIS
     Dosage: UNK mg, UNK
     Route: 048
     Dates: start: 1995, end: 20100501
  2. FOSAMAX [Suspect]
     Indication: OSTEOPENIA

REACTIONS (101)
  - Femur fracture [Unknown]
  - Fall [Unknown]
  - Fibula fracture [Unknown]
  - Fracture nonunion [Unknown]
  - Periprosthetic fracture [Unknown]
  - Pneumonia [Unknown]
  - Tibia fracture [Unknown]
  - Oedema peripheral [Unknown]
  - Femur fracture [Unknown]
  - Oedema [Unknown]
  - Bunion [Not Recovered/Not Resolved]
  - Foot fracture [Unknown]
  - Fracture nonunion [Not Recovered/Not Resolved]
  - Gallbladder disorder [Unknown]
  - Intervertebral disc protrusion [Unknown]
  - Rotator cuff syndrome [Unknown]
  - Uterine disorder [Unknown]
  - Appendix disorder [Unknown]
  - Spinal decompression [Unknown]
  - Arthropathy [Unknown]
  - Platelet count increased [Unknown]
  - Hyponatraemia [Not Recovered/Not Resolved]
  - Device related infection [Unknown]
  - Depression [Unknown]
  - Device failure [Unknown]
  - Haematoma [Unknown]
  - Urinary retention postoperative [Unknown]
  - Residual urine volume increased [Unknown]
  - Urinary incontinence [Unknown]
  - Essential thrombocythaemia [Unknown]
  - Adverse drug reaction [Unknown]
  - Wound infection staphylococcal [Not Recovered/Not Resolved]
  - Haematoma evacuation [Unknown]
  - Synovectomy [Unknown]
  - Arthroscopy [Recovering/Resolving]
  - Tibia fracture [Unknown]
  - Ankle fracture [Unknown]
  - Open reduction of fracture [Unknown]
  - Fall [Unknown]
  - Osteomyelitis [Unknown]
  - Infection [Unknown]
  - Haemorrhagic anaemia [Unknown]
  - Clostridium difficile colitis [Unknown]
  - Anaemia [Unknown]
  - Sinus tachycardia [Unknown]
  - Leukocytosis [Unknown]
  - Urinary tract infection [Unknown]
  - Device failure [Unknown]
  - Hypertension [Unknown]
  - Nodule [Unknown]
  - Colitis ulcerative [Unknown]
  - Thrombocytosis [Recovering/Resolving]
  - Enterobacter infection [Recovered/Resolved]
  - Cellulitis [Unknown]
  - Pain in extremity [Unknown]
  - Drug hypersensitivity [Unknown]
  - Localised infection [Unknown]
  - Intervertebral disc protrusion [Unknown]
  - Adverse drug reaction [Unknown]
  - Low turnover osteopathy [Unknown]
  - Gastric polyps [Unknown]
  - Gastritis [Unknown]
  - Hyperkeratosis [Unknown]
  - Breast mass [Unknown]
  - Hypersensitivity [Unknown]
  - Osteoarthritis [Unknown]
  - Glaucoma [Unknown]
  - Gastrooesophageal reflux disease [Unknown]
  - Tendonitis [Unknown]
  - Colitis [Unknown]
  - Injury [Unknown]
  - Skin ulcer [Unknown]
  - Arthritis [Unknown]
  - Fracture displacement [Unknown]
  - Enterocolitis infectious [Unknown]
  - Device failure [Unknown]
  - Osteoporosis [Unknown]
  - Joint dislocation [Not Recovered/Not Resolved]
  - Arthritis [Unknown]
  - Dermatitis allergic [Unknown]
  - Hyperkalaemia [Unknown]
  - Adverse drug reaction [Unknown]
  - Nausea [Unknown]
  - Red blood cell sedimentation rate increased [Unknown]
  - Insomnia [Unknown]
  - C-reactive protein increased [Unknown]
  - Joint dislocation [Unknown]
  - Blister [Unknown]
  - Hypercholesterolaemia [Unknown]
  - Headache [Unknown]
  - Impaired fasting glucose [Unknown]
  - Adverse drug reaction [Recovered/Resolved]
  - Myalgia [Unknown]
  - Nausea [Recovered/Resolved]
  - Vomiting [Recovered/Resolved]
  - Osteomyelitis [Unknown]
  - Cyst [Unknown]
  - Dry mouth [Unknown]
  - Dyspnoea [Unknown]
  - Skin ulcer [Not Recovered/Not Resolved]
  - Anaemia [Unknown]
